FAERS Safety Report 10645245 (Version 1)
Quarter: 2014Q4

REPORT INFORMATION
  Report Type: Spontaneous
  Country: US (occurrence: None)
  Receive Date: 20141210
  Receipt Date: 20141210
  Transmission Date: 20150529
  Serious: Yes (Other)
  Sender: FDA-Public Use
  Company Number: None

PATIENT
  Age: 76 Year
  Sex: Female

DRUGS (1)
  1. IMBRUVICA [Suspect]
     Active Substance: IBRUTINIB
     Dosage: 140 MG TAKE 3 DAILY  DAILY  ORAL
     Route: 048
     Dates: start: 20140418, end: 20141205

REACTIONS (4)
  - Polyglandular disorder [None]
  - Back pain [None]
  - Headache [None]
  - Pain in jaw [None]

NARRATIVE: CASE EVENT DATE: 20141205
